FAERS Safety Report 5635582-5 (Version None)
Quarter: 2008Q1

REPORT INFORMATION
  Report Type: 
  Country: None (occurrence: None)
  Receive Date: 20080222
  Receipt Date: 20080211
  Transmission Date: 20080703
  Serious: Yes (Death, Hospitalization)
  Sender: FDA-Public Use
  Company Number: FR-ELI_LILLY_AND_COMPANY-FR200706001651

PATIENT
  Sex: Male
  Weight: 157 kg

DRUGS (7)
  1. SOMATROPIN [Suspect]
     Indication: GROWTH HORMONE DEFICIENCY
     Dosage: 1.4 MG, DAILY (1/D)
     Route: 058
     Dates: start: 20061027, end: 20061212
  2. HYDROCORTISONE [Concomitant]
     Dosage: 35 MG, DAILY (1/D)
     Route: 048
     Dates: start: 19940101
  3. LEVOTHYROX [Concomitant]
     Dosage: 150 UG, 2/D
     Route: 048
     Dates: start: 19920101
  4. ANDROTARDYL [Concomitant]
     Dosage: 1.5 D/F, OTHER
     Route: 030
     Dates: start: 20020101
  5. MINRIN [Concomitant]
     Dosage: 0.3 ML, 2/D
     Route: 045
     Dates: start: 19920101
  6. PROZAC [Concomitant]
     Dosage: 20 MG, 3/D
     Route: 048
     Dates: start: 20020101
  7. DELURSAN [Concomitant]
     Dosage: 4 D/F, DAILY (1/D)
     Route: 048
     Dates: start: 20051101

REACTIONS (3)
  - CRANIOPHARYNGIOMA [None]
  - DEATH [None]
  - MENINGIOMA [None]
